FAERS Safety Report 9918230 (Version 1)
Quarter: 2014Q1

REPORT INFORMATION
  Report Type: Spontaneous
  Country: US (occurrence: US)
  Receive Date: 20140224
  Receipt Date: 20140224
  Transmission Date: 20141002
  Serious: No
  Sender: FDA-Public Use
  Company Number: US-009507513-1402USA008849

PATIENT
  Age: 48 Year
  Sex: Female

DRUGS (4)
  1. AZITHROMYCIN [Suspect]
  2. AMOXICILLIN [Suspect]
  3. GABAPENTIN [Suspect]
  4. ESTRADIOL [Suspect]

REACTIONS (1)
  - Herpes zoster [Unknown]
